FAERS Safety Report 8543449-8 (Version None)
Quarter: 2012Q3

REPORT INFORMATION
  Report Type: 
  Country: None (occurrence: None)
  Receive Date: 20120727
  Receipt Date: 20120724
  Transmission Date: 20120928
  Serious: Yes (Disabling)
  Sender: FDA-Public Use
  Company Number: US-PFIZER INC-2012178991

PATIENT
  Sex: Female
  Weight: 53.061 kg

DRUGS (3)
  1. LIPITOR [Suspect]
     Indication: BLOOD CHOLESTEROL INCREASED
     Dosage: 40 MG, DAILY
     Route: 048
     Dates: end: 20120701
  2. IBUPROFEN [Concomitant]
     Indication: PAIN
     Dosage: 400 MG, AS NEEDED
  3. ALEVE [Concomitant]
     Indication: PAIN
     Dosage: 400 MG, EVERY 4 HOURS AS NEEDED
     Route: 048

REACTIONS (1)
  - ROAD TRAFFIC ACCIDENT [None]
